FAERS Safety Report 8187087-8 (Version None)
Quarter: 2012Q1

REPORT INFORMATION
  Report Type: 
  Country: None (occurrence: None)
  Receive Date: 20120213
  Receipt Date: 20111115
  Transmission Date: 20120608
  Serious: Yes (Hospitalization)
  Sender: FDA-Public Use
  Company Number: 1000022262

PATIENT
  Age: 53 Year
  Sex: Male

DRUGS (11)
  1. FENTANYL [Concomitant]
  2. PROMETHAZINE (PROMETHAZINE) (PROMETHAZINE) [Concomitant]
  3. NIASPAN (NICOTINIC ACID) (NICOTINIC ACID) [Concomitant]
  4. SAVELLA [Suspect]
     Indication: FIBROMYALGIA
     Dosage: 12.5 MG (12.5 MG), ORAL; 12.5 MG BID (12.5 MG, 2 IN 1 D), ORAL
     Route: 048
     Dates: start: 20110715, end: 20110716
  5. SAVELLA [Suspect]
     Indication: FIBROMYALGIA
     Dosage: 12.5 MG (12.5 MG), ORAL; 12.5 MG BID (12.5 MG, 2 IN 1 D), ORAL
     Route: 048
     Dates: start: 20110714, end: 20110714
  6. LOTENSIN (BENAZEPRIL) (BENAZEPRIL) [Concomitant]
  7. FLEXERIL (CYCLOBENZAPRINE) (CYCLODENZAPRINE) [Concomitant]
  8. OXYCODONE HCL [Concomitant]
  9. LYRICA [Concomitant]
  10. METFORMIN HCL [Concomitant]
  11. HUMALOG [Concomitant]

REACTIONS (1)
  - SEROTONIN SYNDROME [None]
